FAERS Safety Report 15542842 (Version 2)
Quarter: 2019Q1

REPORT INFORMATION
  Report Type: Spontaneous
  Country: GB (occurrence: GB)
  Receive Date: 20181023
  Receipt Date: 20190122
  Transmission Date: 20190417
  Serious: Yes (Hospitalization, Other)
  Sender: FDA-Public Use
  Company Number: GB-JNJFOC-20181027003

PATIENT
  Age: 87 Year
  Sex: Male
  Weight: 83.46 kg

DRUGS (4)
  1. COSOPT [Concomitant]
     Active Substance: DORZOLAMIDE HYDROCHLORIDE\TIMOLOL MALEATE
     Route: 065
  2. XARELTO [Suspect]
     Active Substance: RIVAROXABAN
     Indication: PRODUCT USED FOR UNKNOWN INDICATION
     Route: 048
     Dates: start: 20180825, end: 20180910
  3. BIMATOPROST. [Concomitant]
     Active Substance: BIMATOPROST
     Route: 065
  4. ANTICOAGULANT CIT PHOS DEX ADENINE [Concomitant]
     Active Substance: CITRIC ACID MONOHYDRATE\DEXTROSE\SODIUM CITRATE\SODIUM PHOSPHATE, MONOBASIC
     Route: 065

REACTIONS (7)
  - Contusion [Recovered/Resolved]
  - Epistaxis [Recovered/Resolved]
  - Skin exfoliation [Recovered/Resolved]
  - Constipation [Recovered/Resolved]
  - Onychoclasis [Not Recovered/Not Resolved]
  - Volvulus [Unknown]
  - Diarrhoea [Recovered/Resolved]

NARRATIVE: CASE EVENT DATE: 20180828
